FAERS Safety Report 25570942 (Version 2)
Quarter: 2025Q4

REPORT INFORMATION
  Report Type: Spontaneous
  Country: CL (occurrence: CL)
  Receive Date: 20250717
  Receipt Date: 20251015
  Transmission Date: 20260117
  Serious: Yes (Hospitalization, Other)
  Sender: IPCA
  Company Number: CL-IPCA LABORATORIES LIMITED-IPC-2025-CL-001841

PATIENT

DRUGS (2)
  1. LAMOTRIGINE [Suspect]
     Active Substance: LAMOTRIGINE
     Indication: Affective disorder
     Dosage: 6.2 GRAM
     Route: 048
  2. CLOTIAZEPAM [Concomitant]
     Active Substance: CLOTIAZEPAM
     Indication: Affective disorder
     Dosage: UNK
     Route: 065

REACTIONS (6)
  - Altered state of consciousness [Recovered/Resolved]
  - Speech disorder [Recovered/Resolved]
  - Nystagmus [Recovered/Resolved]
  - Stridor [Recovered/Resolved]
  - Sinus tachycardia [Recovered/Resolved]
  - Toxicity to various agents [Recovered/Resolved]
